FAERS Safety Report 8978407 (Version 2)
Quarter: 2012Q4

REPORT INFORMATION
  Report Type: Report from Study
  Country: IT (occurrence: IT)
  Receive Date: 20121221
  Receipt Date: 20121226
  Transmission Date: 20130627
  Serious: Yes (Death)
  Sender: FDA-Public Use
  Company Number: IT-PFIZER INC-2012322483

PATIENT
  Age: 51 Year
  Sex: Female
  Weight: 72 kg

DRUGS (3)
  1. CRIZOTINIB [Suspect]
     Indication: NON-SMALL CELL LUNG CANCER
     Dosage: 250 mg, 2x/day
     Route: 048
     Dates: start: 20121113, end: 20121214
  2. MORPHINE [Concomitant]
     Indication: PAIN
     Dosage: 480 mg, weekly (in 7 days)
     Route: 058
     Dates: start: 20121026
  3. DEXAMETASON [Concomitant]
     Indication: PAIN
     Dosage: 28 mg, weekly (in 7 days)
     Route: 058

REACTIONS (1)
  - Interstitial lung disease [Fatal]
